FAERS Safety Report 10070774 (Version 1)
Quarter: 2014Q2

REPORT INFORMATION
  Report Type: Spontaneous
  Country: US (occurrence: US)
  Receive Date: 20140410
  Receipt Date: 20140410
  Transmission Date: 20141212
  Serious: Yes (Other)
  Sender: FDA-Public Use
  Company Number: US-PFIZER INC-2014099859

PATIENT
  Sex: Female

DRUGS (1)
  1. ADVIL [Suspect]
     Indication: PAIN
     Dosage: 3 DF, 4X/DAY
     Dates: start: 2013

REACTIONS (5)
  - Abasia [Unknown]
  - Pain in extremity [Unknown]
  - Peripheral swelling [Unknown]
  - Overdose [Unknown]
  - Incorrect drug administration duration [Unknown]
